FAERS Safety Report 8234532-5 (Version None)
Quarter: 2012Q1

REPORT INFORMATION
  Report Type: 
  Country: None (occurrence: None)
  Receive Date: 20120326
  Receipt Date: 20120315
  Transmission Date: 20120608
  Serious: Yes (Other)
  Sender: FDA-Public Use
  Company Number: US-ROCHE-1022382

PATIENT
  Sex: Female
  Weight: 65.83 kg

DRUGS (2)
  1. ACCUTANE [Suspect]
     Indication: ACNE
     Dates: start: 19950101, end: 19960101
  2. ASPIRIN [Concomitant]

REACTIONS (2)
  - CROHN'S DISEASE [None]
  - INTESTINAL OBSTRUCTION [None]
